FAERS Safety Report 9496901 (Version 2)
Quarter: 2013Q3

REPORT INFORMATION
  Report Type: Spontaneous
  Country: JP (occurrence: JP)
  Receive Date: 20130904
  Receipt Date: 20130904
  Transmission Date: 20140515
  Serious: Yes (Hospitalization, Other)
  Sender: FDA-Public Use
  Company Number: JP-EISAI INC-E3810-06607-SPO-JP

PATIENT
  Age: 52 Year
  Sex: Male
  Weight: 72 kg

DRUGS (9)
  1. PARIET (RABEPRAZOLE) [Suspect]
     Indication: GASTROOESOPHAGEAL REFLUX DISEASE
     Route: 048
     Dates: start: 20110930, end: 20111031
  2. LOXOPROFEN SODIUM [Concomitant]
     Indication: CANCER PAIN
     Route: 048
     Dates: start: 20110930, end: 20111031
  3. WYSTAL [Concomitant]
     Indication: CHOLANGITIS
     Route: 042
     Dates: start: 20111005, end: 20111014
  4. BFLUID [Concomitant]
     Indication: DECREASED APPETITE
     Route: 042
     Dates: start: 20111005, end: 20111017
  5. VITAMEDIN [Concomitant]
     Indication: DECREASED APPETITE
     Route: 042
     Dates: start: 20111005, end: 20111017
  6. DUROTEP [Concomitant]
     Indication: CANCER PAIN
     Route: 065
     Dates: start: 20110930, end: 20111031
  7. URINORM [Concomitant]
     Indication: GOUT
     Route: 048
     Dates: start: 20111004, end: 20111015
  8. URSO [Concomitant]
     Indication: HEPATIC FUNCTION ABNORMAL
     Route: 048
     Dates: start: 20111005, end: 20111017
  9. BERIZYM [Concomitant]
     Indication: PANCREATIC INSUFFICIENCY
     Route: 048
     Dates: start: 20111005, end: 20111017

REACTIONS (2)
  - Toxic epidermal necrolysis [Not Recovered/Not Resolved]
  - Hepatic failure [Unknown]
